FAERS Safety Report 10975726 (Version 1)
Quarter: 2015Q2

REPORT INFORMATION
  Report Type: Spontaneous
  Country: US (occurrence: US)
  Receive Date: 20150401
  Receipt Date: 20150401
  Transmission Date: 20150821
  Serious: No
  Sender: FDA-Public Use
  Company Number: US-PFIZER INC-2015111025

PATIENT
  Age: 62 Year
  Sex: Female
  Weight: 57 kg

DRUGS (6)
  1. PROGESTERONE. [Concomitant]
     Active Substance: PROGESTERONE
     Indication: HORMONE REPLACEMENT THERAPY
     Dosage: 25 MG, DAILY
  2. ARMOUR THYROID [Concomitant]
     Active Substance: THYROID, PORCINE\THYROID, UNSPECIFIED
     Indication: BASEDOW^S DISEASE
     Dosage: 180 MG, DAILY (EVERY MORNING )
  3. PROGESTERONE-70/30 [Concomitant]
     Indication: HORMONE REPLACEMENT THERAPY
  4. SULFAMETHOXAZOLE/TRIMETHOPRIM [Suspect]
     Active Substance: SULFAMETHOXAZOLE\TRIMETHOPRIM
     Indication: SKIN LESION
  5. BIESTROGEN [Concomitant]
     Indication: HORMONE REPLACEMENT THERAPY
     Dosage: 1 DF, DAILY
  6. ESTROGEN [Concomitant]
     Active Substance: ESTRONE\SUS SCROFA OVARY
     Indication: HORMONE REPLACEMENT THERAPY
     Dosage: 1.25 MG, DAILY

REACTIONS (1)
  - Drug ineffective [Unknown]
